FAERS Safety Report 16571868 (Version 1)
Quarter: 2019Q3

REPORT INFORMATION
  Report Type: Spontaneous
  Country: IT (occurrence: IT)
  Receive Date: 20190715
  Receipt Date: 20190715
  Transmission Date: 20191004
  Serious: Yes (Hospitalization)
  Sender: FDA-Public Use
  Company Number: IT-PFIZER INC-2019299623

PATIENT
  Age: 17 Year
  Sex: Male

DRUGS (6)
  1. METRONIDAZOLE. [Concomitant]
     Active Substance: METRONIDAZOLE
  2. RANITIDINE. [Concomitant]
     Active Substance: RANITIDINE
  3. TYGACIL [Suspect]
     Active Substance: TIGECYCLINE
     Indication: HEPATIC INFECTION
     Dosage: 100 MG, SINGLE
     Route: 042
     Dates: start: 20190619, end: 20190619
  4. CERNEVIT [Concomitant]
     Active Substance: VITAMINS
  5. DIFLUCAN [Concomitant]
     Active Substance: FLUCONAZOLE
  6. TAZOCIN [Concomitant]
     Active Substance: PIPERACILLIN SODIUM\TAZOBACTAM SODIUM

REACTIONS (2)
  - Urticaria [Recovered/Resolved]
  - Pruritus [Recovered/Resolved]

NARRATIVE: CASE EVENT DATE: 20190619
